FAERS Safety Report 11322399 (Version 2)
Quarter: 2015Q3

REPORT INFORMATION
  Report Type: Spontaneous
  Country: US (occurrence: US)
  Receive Date: 20150730
  Receipt Date: 20150908
  Transmission Date: 20151125
  Serious: No
  Sender: FDA-Public Use
  Company Number: US-AMGEN-USASP2015074708

PATIENT
  Age: 75 Year
  Sex: Female

DRUGS (1)
  1. ENBREL [Suspect]
     Active Substance: ETANERCEPT
     Indication: RHEUMATOID ARTHRITIS
     Dosage: UNK, WEEKLY
     Route: 065

REACTIONS (7)
  - Pain in extremity [Recovered/Resolved]
  - Injury associated with device [Unknown]
  - Injection site pain [Unknown]
  - Vocal cord disorder [Unknown]
  - Wrong technique in product usage process [Unknown]
  - Slow speech [Unknown]
  - Device issue [Unknown]

NARRATIVE: CASE EVENT DATE: 20150715
